FAERS Safety Report 8574991-1 (Version None)
Quarter: 2012Q3

REPORT INFORMATION
  Report Type: 
  Country: None (occurrence: None)
  Receive Date: 20120807
  Receipt Date: 20120801
  Transmission Date: 20120928
  Serious: No
  Sender: FDA-Public Use
  Company Number: US-BAYER-2012-077777

PATIENT
  Age: 57 Year
  Sex: Male
  Weight: 81.633 kg

DRUGS (4)
  1. ASPIRIN [Concomitant]
  2. ANALGESICS [Concomitant]
  3. ALEVE (CAPLET) [Suspect]
     Indication: HEADACHE
     Dosage: UNK
     Route: 048
     Dates: start: 20120701
  4. NERVE MEDICATION [Concomitant]

REACTIONS (2)
  - MALAISE [None]
  - DIZZINESS [None]
